FAERS Safety Report 21871113 (Version 1)
Quarter: 2023Q1

REPORT INFORMATION
  Report Type: Spontaneous
  Country: US (occurrence: None)
  Receive Date: 20230113
  Receipt Date: 20230113
  Transmission Date: 20230418
  Serious: No
  Sender: FDA-Public Use
  Company Number: None

PATIENT
  Sex: Female

DRUGS (1)
  1. HUMIRA [Suspect]
     Active Substance: ADALIMUMAB
     Indication: Sarcoidosis
     Dosage: OTHER FREQUENCY : Q OTHER WEEK;?
     Route: 058
     Dates: start: 202204

REACTIONS (3)
  - Device defective [None]
  - Drug delivery system malfunction [None]
  - Incorrect dose administered by device [None]
